FAERS Safety Report 20940451 (Version 5)
Quarter: 2023Q2

REPORT INFORMATION
  Report Type: Report from Study
  Country: JP (occurrence: JP)
  Receive Date: 20220609
  Receipt Date: 20230623
  Transmission Date: 20230722
  Serious: Yes (Hospitalization, Other)
  Sender: FDA-Public Use
  Company Number: JP-BRISTOL-MYERS SQUIBB COMPANY-2022-023527

PATIENT
  Age: 62 Year
  Sex: Female
  Weight: 57.9 kg

DRUGS (24)
  1. BMS-986310 [Suspect]
     Active Substance: BMS-986310
     Indication: Colorectal cancer
     Dosage: CUMULATIVE DOSAGE: 7240MG
     Route: 048
     Dates: start: 20211010, end: 20220410
  2. BMS-986310 [Suspect]
     Active Substance: BMS-986310
     Dosage: CUMULATIVE DOSAGE: 7240MG
     Route: 048
     Dates: start: 20220502, end: 20230528
  3. COMIRNATY [Suspect]
     Active Substance: TOZINAMERAN
     Indication: Colorectal cancer
     Dosage: UNK
     Route: 030
     Dates: start: 20220408
  4. BEVACIZUMAB [Suspect]
     Active Substance: BEVACIZUMAB
     Indication: Colorectal cancer
     Dosage: 7.5 MG/KG, Q3W
     Dates: start: 20211012
  5. BEVACIZUMAB [Suspect]
     Active Substance: BEVACIZUMAB
     Dosage: 7.5 MG/KG, Q3W
     Dates: start: 20220502
  6. BEVACIZUMAB [Suspect]
     Active Substance: BEVACIZUMAB
     Dates: start: 20230509
  7. OXALIPLATIN [Suspect]
     Active Substance: OXALIPLATIN
     Indication: Colorectal cancer
     Dosage: 130 MG/M2, Q3W
     Dates: start: 20211012
  8. CAPECITABINE [Suspect]
     Active Substance: CAPECITABINE
     Indication: Colorectal cancer
     Dosage: 1000 MG/M2, Q12H, 14 DAYS ADMINISTRATION, 7 DAYS WITHDRAWAL
     Route: 048
     Dates: start: 20211012
  9. CAPECITABINE [Suspect]
     Active Substance: CAPECITABINE
     Dosage: 1000 MG/M2, Q12H, 14 DAYS ADMINISTRATION, 7 DAYS WITHDRAWAL
     Route: 048
     Dates: start: 20220502
  10. CAPECITABINE [Suspect]
     Active Substance: CAPECITABINE
     Dosage: 500 MG/M2, Q12H, 14 DAYS ADMINISTRATION, 7 DAYS WITHDRAWAL
     Route: 048
  11. CAPECITABINE [Suspect]
     Active Substance: CAPECITABINE
     Dosage: L
     Route: 048
     Dates: start: 20230509
  12. LEVOTHYROXINE SODIUM [Concomitant]
     Active Substance: LEVOTHYROXINE SODIUM
     Indication: Hypothyroidism
     Dosage: 100 ?G, EVERYDAY, BEFORE SLEEP
     Route: 048
     Dates: start: 20220330, end: 20220419
  13. LEVOTHYROXINE SODIUM [Concomitant]
     Active Substance: LEVOTHYROXINE SODIUM
     Dosage: 125 ?G, EVERYDAY, BEFORE SLEEP
     Route: 048
     Dates: start: 20220420
  14. LEVOTHYROXINE SODIUM [Concomitant]
     Active Substance: LEVOTHYROXINE SODIUM
     Dosage: 150 ?G, EVERYDAY, WAKING UP
     Route: 048
     Dates: start: 20220622
  15. MAGNESIUM OXIDE [Concomitant]
     Active Substance: MAGNESIUM OXIDE
     Indication: Constipation prophylaxis
     Dosage: 660 MG, Q12H, AFTER BREAKFAST AND LUNCH
     Route: 048
     Dates: start: 2021
  16. OXALIPLATIN [Concomitant]
     Active Substance: OXALIPLATIN
     Indication: Colorectal cancer
     Dates: start: 20211012
  17. NEXIUM [Concomitant]
     Active Substance: ESOMEPRAZOLE MAGNESIUM
     Indication: Prophylaxis against gastrointestinal ulcer
     Dosage: 20 MG, EVERYDAY, AFTER BREAKFAST
     Route: 048
     Dates: start: 20220330
  18. VONOPRAZAN FUMARATE [Concomitant]
     Active Substance: VONOPRAZAN FUMARATE
     Indication: Gastric ulcer
     Dosage: 20 MG, EVERY DAY, AFTER DINNER
     Route: 048
     Dates: start: 20221004
  19. LOXOPROFEN [Concomitant]
     Active Substance: LOXOPROFEN
     Indication: Pain in extremity
     Dosage: UNK, PRN
     Route: 048
     Dates: start: 20221007
  20. HEPARINOID [Concomitant]
     Indication: Prophylaxis
     Dosage: UNK, PRN
     Route: 061
     Dates: start: 20211013
  21. HEPARINOID [Concomitant]
     Dosage: UNK, PRN
     Route: 061
     Dates: start: 20211013
  22. MIRABEGRON [Concomitant]
     Active Substance: MIRABEGRON
     Indication: Hypertonic bladder
     Dosage: 50 MG, EVERYDAY, BEFORE SLEEP
     Route: 048
     Dates: start: 20230202
  23. UREA [Concomitant]
     Active Substance: UREA
     Indication: Prophylaxis
     Dosage: OINTMENT, CREAM
     Route: 061
     Dates: start: 20230201
  24. LULICONAZOLE [Concomitant]
     Active Substance: LULICONAZOLE
     Indication: Dermatophytosis of nail
     Dosage: OINTMENT, CREAM
     Route: 061
     Dates: start: 20230309

REACTIONS (4)
  - Fulminant type 1 diabetes mellitus [Not Recovered/Not Resolved]
  - Urinary tract infection [Recovered/Resolved]
  - Gastric ulcer [Recovering/Resolving]
  - Malaise [Recovering/Resolving]

NARRATIVE: CASE EVENT DATE: 20220411
